FAERS Safety Report 7653685-0 (Version None)
Quarter: 2011Q3

REPORT INFORMATION
  Report Type: 
  Country: None (occurrence: None)
  Receive Date: 20110803
  Receipt Date: 20110719
  Transmission Date: 20111222
  Serious: Yes (Hospitalization)
  Sender: FDA-Public Use
  Company Number: DE-ENDO PHARMACEUTICALS INC.-FRVA20110018

PATIENT
  Sex: Female

DRUGS (1)
  1. FROVATRIPTAN SUCCINATE [Suspect]
     Indication: MIGRAINE
     Dosage: 7.5 MG
     Route: 048
     Dates: start: 20090101, end: 20110401

REACTIONS (2)
  - VISUAL IMPAIRMENT [None]
  - VOMITING [None]
